FAERS Safety Report 4718772-5 (Version None)
Quarter: 2005Q3

REPORT INFORMATION
  Report Type: 
  Country: None (occurrence: None)
  Receive Date: 20050719
  Receipt Date: 20050705
  Transmission Date: 20060218
  Serious: Yes (Other)
  Sender: FDA-Public Use
  Company Number: 2005096026

PATIENT
  Age: 20 Year
  Sex: Female
  Weight: 68.0396 kg

DRUGS (1)
  1. BENADRYL [Suspect]
     Indication: SINUS CONGESTION
     Dosage: 2 CAPSULES ORAL
     Route: 048
     Dates: end: 20050704

REACTIONS (3)
  - FORMICATION [None]
  - HALLUCINATIONS, MIXED [None]
  - URINE AMPHETAMINE POSITIVE [None]
